FAERS Safety Report 16020927 (Version 1)
Quarter: 2019Q1

REPORT INFORMATION
  Report Type: Spontaneous
  Country: US (occurrence: US)
  Receive Date: 20190228
  Receipt Date: 20190228
  Transmission Date: 20190418
  Serious: Yes (Other)
  Sender: FDA-Public Use
  Company Number: None

PATIENT
  Age: 59 Year
  Sex: Female
  Weight: 54.45 kg

DRUGS (2)
  1. MESALAMINE SUPPOSITORIES FOR RECTUM, 1000 MGS. [Suspect]
     Active Substance: MESALAMINE
     Indication: PROCTITIS
     Dosage: ?          QUANTITY:1 SUPPOSITORY(IES);?
     Route: 054
  2. MESALAMINE SUPPOSITORIES FOR RECTUM, 1000 MGS. [Suspect]
     Active Substance: MESALAMINE
     Indication: COLITIS ULCERATIVE
     Dosage: ?          QUANTITY:1 SUPPOSITORY(IES);?
     Route: 054

REACTIONS (5)
  - Rectal discharge [None]
  - Proctalgia [None]
  - Product substitution issue [None]
  - Drug ineffective [None]
  - Diarrhoea [None]

NARRATIVE: CASE EVENT DATE: 20190107
